FAERS Safety Report 22110559 (Version 4)
Quarter: 2023Q2

REPORT INFORMATION
  Report Type: Spontaneous
  Country: US (occurrence: US)
  Receive Date: 20230317
  Receipt Date: 20230622
  Transmission Date: 20230721
  Serious: Yes (Hospitalization)
  Sender: FDA-Public Use
  Company Number: US-JNJFOC-20230321993

PATIENT
  Sex: Male
  Weight: 88.53 kg

DRUGS (4)
  1. REMICADE [Suspect]
     Active Substance: INFLIXIMAB
     Indication: Chorioretinitis
     Dosage: 9 VIALS OF 100 MG PER INFUSION
     Route: 041
  2. REMICADE [Suspect]
     Active Substance: INFLIXIMAB
     Indication: Rheumatoid arthritis
  3. METHOTREXATE [Concomitant]
     Active Substance: METHOTREXATE
     Indication: Chorioretinitis
  4. PREDNISONE [Concomitant]
     Active Substance: PREDNISONE
     Indication: Chorioretinitis
     Route: 048

REACTIONS (4)
  - Sepsis [Not Recovered/Not Resolved]
  - Tooth abscess [Unknown]
  - Skin lesion [Unknown]
  - Drug ineffective [Unknown]
